FAERS Safety Report 10930422 (Version 1)
Quarter: 2015Q1

REPORT INFORMATION
  Report Type: Spontaneous
  Country: US (occurrence: US)
  Receive Date: 20150319
  Receipt Date: 20150319
  Transmission Date: 20150721
  Serious: Yes (Hospitalization, Other)
  Sender: FDA-Public Use
  Company Number: US-GLAXOSMITHKLINE-US2015035466

PATIENT
  Age: 51 Year
  Sex: Female

DRUGS (3)
  1. ADVAIR DISKUS [Suspect]
     Active Substance: FLUTICASONE PROPIONATE\SALMETEROL XINAFOATE
     Indication: CHRONIC OBSTRUCTIVE PULMONARY DISEASE
     Dosage: 1 DF, BID
     Dates: start: 2001
  2. CLONIDINE. [Concomitant]
     Active Substance: CLONIDINE
  3. LABETALOL [Concomitant]
     Active Substance: LABETALOL\LABETALOL HYDROCHLORIDE

REACTIONS (8)
  - Dizziness [Recovered/Resolved]
  - Brain operation [Unknown]
  - Renal failure [Recovered/Resolved]
  - Hypertension [Not Recovered/Not Resolved]
  - Productive cough [Recovered/Resolved]
  - Intracranial aneurysm [Not Recovered/Not Resolved]
  - Blood pressure decreased [Recovered/Resolved]
  - Influenza like illness [Recovered/Resolved]

NARRATIVE: CASE EVENT DATE: 20141120
